FAERS Safety Report 22115685 (Version 1)
Quarter: 2023Q1

REPORT INFORMATION
  Report Type: Spontaneous
  Country: US (occurrence: US)
  Receive Date: 20230320
  Receipt Date: 20230320
  Transmission Date: 20230418
  Serious: Yes (Other)
  Sender: FDA-Public Use
  Company Number: US-BAYER-2023A035796

PATIENT
  Age: 73 Year
  Sex: Male

DRUGS (1)
  1. MOXIFLOXACIN [Suspect]
     Active Substance: MOXIFLOXACIN
     Indication: Disseminated Bacillus Calmette-Guerin infection

REACTIONS (6)
  - Off label use [None]
  - Systemic inflammatory response syndrome [None]
  - Ascites [None]
  - Renal failure [None]
  - Paracentesis [None]
  - Mycobacterial infection [None]
